FAERS Safety Report 19321947 (Version 1)
Quarter: 2021Q2

REPORT INFORMATION
  Report Type: Report from Study
  Country: AR (occurrence: AR)
  Receive Date: 20210528
  Receipt Date: 20210528
  Transmission Date: 20210717
  Serious: Yes (Other)
  Sender: FDA-Public Use
  Company Number: AR-BRISTOL-MYERS SQUIBB COMPANY-BMS-2021-050937

PATIENT
  Age: 77 Year
  Sex: Male

DRUGS (2)
  1. APIXABAN [Suspect]
     Active Substance: APIXABAN
     Indication: CEREBROVASCULAR ACCIDENT PROPHYLAXIS
     Dosage: 5 MILLIGRAM
     Route: 065
     Dates: start: 20190313
  2. APIXABAN [Suspect]
     Active Substance: APIXABAN
     Dosage: SPLITTING 5 MG PILL IN THE MIDDLE CONSUMING IHALF A PILL AT THE MORNING AND EVENING
     Route: 065
     Dates: start: 20210514

REACTIONS (2)
  - Treatment noncompliance [Unknown]
  - Cardiac disorder [Unknown]

NARRATIVE: CASE EVENT DATE: 20210514
